FAERS Safety Report 9658000 (Version 3)
Quarter: 2013Q4

REPORT INFORMATION
  Report Type: Spontaneous
  Country: US (occurrence: US)
  Receive Date: 20131030
  Receipt Date: 20131127
  Transmission Date: 20140711
  Serious: No
  Sender: FDA-Public Use
  Company Number: US-TEVA-441332USA

PATIENT
  Age: 35 Year
  Sex: Female

DRUGS (1)
  1. PLAN B ONE-STEP [Suspect]
     Indication: POST COITAL CONTRACEPTION
     Dosage: 1.5 MILLIGRAM DAILY;
     Route: 048
     Dates: start: 20131007, end: 20131007

REACTIONS (4)
  - Bladder pain [Recovered/Resolved]
  - Back pain [Recovered/Resolved]
  - Protein urine present [Unknown]
  - Menorrhagia [Recovered/Resolved]
